FAERS Safety Report 11935030 (Version 1)
Quarter: 2016Q1

REPORT INFORMATION
  Report Type: Spontaneous
  Country: BE (occurrence: BE)
  Receive Date: 20160121
  Receipt Date: 20160121
  Transmission Date: 20160526
  Serious: Yes (Hospitalization)
  Sender: FDA-Public Use
  Company Number: PHHY2016BE005730

PATIENT
  Age: 75 Year
  Sex: Male

DRUGS (4)
  1. TEMOCILLIN [Suspect]
     Active Substance: TEMOCILLIN
     Indication: SEPSIS
     Route: 065
  2. ORNIDAZOLE [Suspect]
     Active Substance: ORNIDAZOLE
     Indication: SEPSIS
     Route: 065
  3. VANCOMYCIN [Suspect]
     Active Substance: VANCOMYCIN
     Indication: SEPSIS
     Route: 065
  4. CLINDAMYCIN [Concomitant]
     Active Substance: CLINDAMYCIN\CLINDAMYCIN PHOSPHATE
     Indication: PRODUCT USED FOR UNKNOWN INDICATION
     Route: 048

REACTIONS (2)
  - Drug effect incomplete [Unknown]
  - Necrosis [Unknown]
